FAERS Safety Report 8197303-4 (Version None)
Quarter: 2012Q1

REPORT INFORMATION
  Report Type: 
  Country: None (occurrence: None)
  Receive Date: 20120309
  Receipt Date: 20120306
  Transmission Date: 20120608
  Serious: No
  Sender: FDA-Public Use
  Company Number: US-PFIZER INC-2012060191

PATIENT
  Sex: Female
  Weight: 66.213 kg

DRUGS (5)
  1. CLONAZEPAM [Suspect]
     Dosage: UNK
     Dates: start: 20100101
  2. NEURONTIN [Suspect]
     Indication: FIBROMYALGIA
     Dosage: 300 MG, 2X/DAY
     Route: 048
     Dates: start: 20100101
  3. SAVELLA [Suspect]
     Indication: FIBROMYALGIA
     Dosage: 50 MG, 2X/DAY
     Dates: start: 20100101
  4. SAVELLA [Suspect]
     Dosage: UNK
     Dates: start: 20100101
  5. CLONAZEPAM [Suspect]
     Indication: FIBROMYALGIA
     Dosage: 0.5 MG, 3X/DAY
     Dates: start: 20100101

REACTIONS (1)
  - WEIGHT INCREASED [None]
